FAERS Safety Report 19777024 (Version 2)
Quarter: 2021Q3

REPORT INFORMATION
  Report Type: Spontaneous
  Country: US (occurrence: US)
  Receive Date: 20210902
  Receipt Date: 20210907
  Transmission Date: 20211014
  Serious: No
  Sender: FDA-Public Use
  Company Number: US-SUN PHARMACEUTICAL INDUSTRIES LTD-2021R1-309408

PATIENT
  Age: 87 Year
  Sex: Male

DRUGS (1)
  1. ACETAMINOPHEN AND CODEINE [Suspect]
     Active Substance: ACETAMINOPHEN\CODEINE PHOSPHATE
     Indication: ARTHRALGIA
     Dosage: UNK
     Route: 065

REACTIONS (2)
  - Medication error [Unknown]
  - Fixed eruption [Recovered/Resolved]
